FAERS Safety Report 6593713-7 (Version None)
Quarter: 2010Q1

REPORT INFORMATION
  Report Type: 
  Country: None (occurrence: None)
  Receive Date: 20100222
  Receipt Date: 20091219
  Transmission Date: 20100710
  Serious: Yes (Other)
  Sender: FDA-Public Use
  Company Number: US-BRISTOL-MYERS SQUIBB COMPANY-14892566

PATIENT
  Age: 53 Year
  Sex: Male
  Weight: 95 kg

DRUGS (25)
  1. ORENCIA [Suspect]
     Indication: RHEUMATOID ARTHRITIS
     Dosage: TOTAL OF 5 INFUSIONS
     Route: 042
     Dates: start: 20090701, end: 20091119
  2. BENADRYL [Concomitant]
  3. PATANOL [Concomitant]
  4. VENTOLIN DS [Concomitant]
     Route: 055
  5. ADVAIR DISKUS 100/50 [Concomitant]
     Route: 055
  6. DARVOCET [Concomitant]
  7. HYDROCODONE [Concomitant]
  8. METHYLPREDNISOLONE ACETATE [Concomitant]
  9. CARTIA XT [Concomitant]
  10. RAMIPRIL [Concomitant]
  11. ASPIRIN [Concomitant]
  12. PLAVIX [Concomitant]
     Route: 048
     Dates: start: 20090201
  13. LEVEMIR [Concomitant]
  14. NOVOLOG [Concomitant]
  15. LEVOTHYROX [Concomitant]
  16. TORSEMIDE [Concomitant]
  17. CRESTOR [Concomitant]
  18. PROTONIX [Concomitant]
  19. BONIVA [Concomitant]
  20. TRAVOPROST [Concomitant]
     Dosage: EYE DROPS
  21. VITAMIN D [Concomitant]
     Dosage: ALSO TAKEN ON 1000 IU DAILY
  22. CALCIUM [Concomitant]
  23. CENTRUM SILVER [Concomitant]
  24. MULTIVITAMIN WITH MINERALS [Concomitant]
  25. FISH OIL [Concomitant]
     Dosage: FISH OIL GEL PACKS

REACTIONS (2)
  - ASPERGILLOSIS [None]
  - RHEUMATOID ARTHRITIS [None]
